FAERS Safety Report 21745465 (Version 1)
Quarter: 2022Q4

REPORT INFORMATION
  Report Type: Spontaneous
  Country: CN (occurrence: CN)
  Receive Date: 20221219
  Receipt Date: 20221219
  Transmission Date: 20230113
  Serious: Yes (Death, Life-Threatening, Hospitalization, Other)
  Sender: FDA-Public Use
  Company Number: None

PATIENT
  Age: 81 Year
  Sex: Male

DRUGS (4)
  1. MYCOPHENOLATE MOFETIL [Suspect]
     Active Substance: MYCOPHENOLATE MOFETIL
     Indication: Immunosuppressant drug therapy
     Dosage: 750 MILLIGRAM, BID (INITIAL DOSE)
     Route: 065
  2. ASPIRIN [Suspect]
     Active Substance: ASPIRIN
     Indication: Ischaemic stroke
     Dosage: UNK
     Route: 065
  3. METHYLPREDNISOLONE [Concomitant]
     Active Substance: METHYLPREDNISOLONE
     Indication: Neuromyelitis optica spectrum disorder
     Dosage: 500 MILLIGRAM EVERY 1 DAY FOR 5 DAYS FOLLOWED BY A TAPERING SCHEME
     Route: 042
  4. Immunoglobulin [Concomitant]
     Indication: Neuromyelitis optica spectrum disorder
     Dosage: 0.4 GRAM PER KILOGRAM
     Route: 065

REACTIONS (3)
  - Pneumonia [Fatal]
  - Condition aggravated [Unknown]
  - Therapy non-responder [Unknown]
